FAERS Safety Report 9121872 (Version 1)
Quarter: 2012Q4

REPORT INFORMATION
  Report Type: Spontaneous
  Country: US (occurrence: None)
  Receive Date: 20121026
  Receipt Date: 20121026
  Transmission Date: 20130627
  Serious: No
  Sender: FDA-Public Use
  Company Number: 2012US-004368

PATIENT
  Age: 44 Year
  Sex: Female
  Weight: 67 kg

DRUGS (2)
  1. OMONTYS (PEGINESATIDE) SOLUTION FOR INJECTION [Suspect]
     Indication: NEPHROGENIC ANAEMIA
     Route: 042
     Dates: start: 20120903, end: 20120903
  2. TYLENOL (ACETAMINOPHEN) [Suspect]
     Dosage: 650 mg, prn, oral
     Route: 048
     Dates: start: 20120903, end: 20120903

REACTIONS (2)
  - Vomiting [None]
  - Nausea [None]
